FAERS Safety Report 15932958 (Version 4)
Quarter: 2019Q2

REPORT INFORMATION
  Report Type: Spontaneous
  Country: US (occurrence: US)
  Receive Date: 20190207
  Receipt Date: 20190415
  Transmission Date: 20190711
  Serious: Yes (Other)
  Sender: FDA-Public Use
  Company Number: US-ASTRAZENECA-2018SF26943

PATIENT
  Age: 17515 Day
  Sex: Male
  Weight: 71.7 kg

DRUGS (21)
  1. PRILOSEC [Suspect]
     Active Substance: OMEPRAZOLE MAGNESIUM
     Indication: GASTROOESOPHAGEAL REFLUX DISEASE
     Route: 048
  2. PROTONIX [Suspect]
     Active Substance: PANTOPRAZOLE SODIUM
     Route: 048
     Dates: start: 201310, end: 201310
  3. NEXIUM 24HR [Suspect]
     Active Substance: ESOMEPRAZOLE MAGNESIUM
     Indication: GASTROOESOPHAGEAL REFLUX DISEASE
     Route: 048
     Dates: start: 20140403, end: 20170101
  4. DEXILANT [Suspect]
     Active Substance: DEXLANSOPRAZOLE
     Route: 048
     Dates: start: 201310, end: 201310
  5. PREVACID 24 HR [Suspect]
     Active Substance: LANSOPRAZOLE
     Indication: GASTROOESOPHAGEAL REFLUX DISEASE
     Route: 065
     Dates: start: 201310, end: 201310
  6. PROTONIX [Suspect]
     Active Substance: PANTOPRAZOLE SODIUM
     Route: 048
     Dates: start: 20030703, end: 20170101
  7. GABAPENTIN. [Concomitant]
     Active Substance: GABAPENTIN
     Route: 048
  8. NEXIUM [Suspect]
     Active Substance: ESOMEPRAZOLE MAGNESIUM
     Indication: GASTROOESOPHAGEAL REFLUX DISEASE
     Route: 048
  9. NEXIUM [Suspect]
     Active Substance: ESOMEPRAZOLE MAGNESIUM
     Indication: GASTROOESOPHAGEAL REFLUX DISEASE
     Route: 048
     Dates: start: 20010304, end: 20170101
  10. SENSIPAR [Concomitant]
     Active Substance: CINACALCET HYDROCHLORIDE
     Route: 048
  11. PRILOSEC OTC [Suspect]
     Active Substance: OMEPRAZOLE MAGNESIUM
     Indication: GASTROOESOPHAGEAL REFLUX DISEASE
     Route: 048
     Dates: start: 20030703, end: 20170101
  12. PREVACID [Suspect]
     Active Substance: LANSOPRAZOLE
     Indication: GASTROOESOPHAGEAL REFLUX DISEASE
     Route: 065
     Dates: start: 19950403, end: 20170101
  13. SERTRALINE [Concomitant]
     Active Substance: SERTRALINE HYDROCHLORIDE
     Route: 048
  14. CARVEDILOL. [Concomitant]
     Active Substance: CARVEDILOL
     Route: 048
  15. NEXIUM [Suspect]
     Active Substance: ESOMEPRAZOLE MAGNESIUM
     Indication: GASTROOESOPHAGEAL REFLUX DISEASE
     Route: 048
     Dates: start: 201310, end: 201310
  16. DEXILANT [Suspect]
     Active Substance: DEXLANSOPRAZOLE
     Route: 048
     Dates: start: 20030703, end: 20170101
  17. PREVACID 24 HR [Suspect]
     Active Substance: LANSOPRAZOLE
     Indication: GASTROOESOPHAGEAL REFLUX DISEASE
     Route: 065
     Dates: start: 19950403, end: 20170101
  18. TRAMADOL. [Concomitant]
     Active Substance: TRAMADOL
     Route: 048
  19. MINOXIDIL. [Concomitant]
     Active Substance: MINOXIDIL
     Route: 048
  20. PREVACID [Suspect]
     Active Substance: LANSOPRAZOLE
     Indication: GASTROOESOPHAGEAL REFLUX DISEASE
     Route: 065
     Dates: start: 201310, end: 201310
  21. PRILOSEC OTC [Suspect]
     Active Substance: OMEPRAZOLE MAGNESIUM
     Indication: GASTROOESOPHAGEAL REFLUX DISEASE
     Route: 048
     Dates: start: 201310, end: 201310

REACTIONS (5)
  - Acute kidney injury [Unknown]
  - Chronic kidney disease [Not Recovered/Not Resolved]
  - Renal injury [Unknown]
  - End stage renal disease [Unknown]
  - Renal failure [Unknown]

NARRATIVE: CASE EVENT DATE: 20060627
